FAERS Safety Report 20079305 (Version 1)
Quarter: 2021Q4

REPORT INFORMATION
  Report Type: Other
  Country: FR (occurrence: FR)
  Receive Date: 20211117
  Receipt Date: 20211117
  Transmission Date: 20220303
  Serious: Yes (Hospitalization)
  Sender: FDA-Public Use
  Company Number: None

PATIENT

DRUGS (5)
  1. ESOMEPRAZOLE [Suspect]
     Active Substance: ESOMEPRAZOLE
     Indication: Product used for unknown indication
     Dosage: 1 DOSAGE FORM, QD
     Route: 048
  2. GLICLAZIDE [Suspect]
     Active Substance: GLICLAZIDE
     Indication: Type 2 diabetes mellitus
     Dosage: 30 DOSAGE FORM, QD
     Route: 048
     Dates: start: 202101
  3. ESIDREX [Suspect]
     Active Substance: HYDROCHLOROTHIAZIDE
     Indication: Hypertension
     Dosage: 2 DOSAGE FORM, QD
     Route: 048
  4. COMIRNATY [Suspect]
     Active Substance: TOZINAMERAN
     Indication: COVID-19 immunisation
     Dosage: 1 DOSAGE FORM TOTAL
     Route: 030
     Dates: start: 202106, end: 202106
  5. OZEMPIC [Suspect]
     Active Substance: SEMAGLUTIDE
     Indication: Type 2 diabetes mellitus
     Dosage: 1 MILLIGRAM EVERY WEEK
     Route: 058
     Dates: start: 20210119

REACTIONS (1)
  - Mesenteric panniculitis [Not Recovered/Not Resolved]

NARRATIVE: CASE EVENT DATE: 20211001
